FAERS Safety Report 9216729 (Version 1)
Quarter: 2013Q2

REPORT INFORMATION
  Report Type: Spontaneous
  Country: US (occurrence: US)
  Receive Date: 20130405
  Receipt Date: 20130405
  Transmission Date: 20140414
  Serious: No
  Sender: FDA-Public Use
  Company Number: US-BRACCO-007696

PATIENT
  Age: 30 Year
  Sex: Male

DRUGS (2)
  1. GASTROGRAFIN [Suspect]
     Indication: FISTULOGRAM
     Dates: start: 20120301, end: 20120301
  2. GASTROGRAFIN [Suspect]
     Indication: CATHETER PLACEMENT
     Dates: start: 20120301, end: 20120301

REACTIONS (1)
  - Drug ineffective [Unknown]
